FAERS Safety Report 24088158 (Version 2)
Quarter: 2025Q3

REPORT INFORMATION
  Report Type: Report from Study
  Country: CA (occurrence: CA)
  Receive Date: 20240715
  Receipt Date: 20250711
  Transmission Date: 20251020
  Serious: Yes (Other)
  Sender: SANDOZ
  Company Number: CA-SANDOZ-SDZ2024CA064798

PATIENT
  Sex: Female

DRUGS (2)
  1. HYRIMOZ [Suspect]
     Active Substance: ADALIMUMAB-ADAZ
     Indication: Crohn^s disease
     Dosage: 40 MG, QW
     Route: 058
     Dates: start: 20220506
  2. HYRIMOZ [Suspect]
     Active Substance: ADALIMUMAB-ADAZ
     Dosage: 40 MG, QW
     Route: 058
     Dates: start: 20240710

REACTIONS (8)
  - Cataract [Unknown]
  - Skin discolouration [Unknown]
  - Lacrimation increased [Unknown]
  - Abdominal mass [Unknown]
  - General physical health deterioration [Unknown]
  - Arthritis [Unknown]
  - Pruritus [Unknown]
  - Off label use [Unknown]
